FAERS Safety Report 6587749-X (Version None)
Quarter: 2010Q1

REPORT INFORMATION
  Report Type: 
  Country: None (occurrence: None)
  Receive Date: 20100217
  Receipt Date: 20100217
  Transmission Date: 20100710
  Serious: Yes (Disabling, Other)
  Sender: FDA-Public Use
  Company Number: None

PATIENT
  Age: 88 Year
  Sex: Female
  Weight: 60.782 kg

DRUGS (1)
  1. NEURONTIN [Suspect]
     Indication: NEURALGIA
     Dosage: 4 MG TWICE DAILY 400 MG
     Dates: start: 20100112, end: 20100212

REACTIONS (2)
  - PAIN [None]
  - PRURITUS [None]
